FAERS Safety Report 8770067 (Version 3)
Quarter: 2013Q4

REPORT INFORMATION
  Report Type: Spontaneous
  Country: US (occurrence: US)
  Receive Date: 20120905
  Receipt Date: 20131106
  Transmission Date: 20140711
  Serious: Yes (Life-Threatening, Hospitalization, Disabling, Other)
  Sender: FDA-Public Use
  Company Number: US-009507513-1201USA03652

PATIENT
  Age: 50 Year
  Sex: Female
  Weight: 110.68 kg

DRUGS (3)
  1. JANUVIA [Suspect]
     Indication: PROPHYLAXIS
     Dosage: 100 MG, QD
     Route: 048
     Dates: start: 20111019, end: 20120108
  2. ZANTAC [Concomitant]
  3. ASPIRIN [Concomitant]

REACTIONS (2)
  - Pancreatitis [Recovering/Resolving]
  - Cholecystectomy [Recovering/Resolving]
